FAERS Safety Report 17338344 (Version 1)
Quarter: 2020Q1

REPORT INFORMATION
  Report Type: Spontaneous
  Country: US (occurrence: US)
  Receive Date: 20200129
  Receipt Date: 20200129
  Transmission Date: 20200409
  Serious: Yes (Hospitalization, Disabling, Other)
  Sender: FDA-Public Use
  Company Number: US-ELI_LILLY_AND_COMPANY-US202001011021

PATIENT
  Age: 59 Year
  Sex: Female

DRUGS (1)
  1. BASAGLAR [Suspect]
     Active Substance: INSULIN GLARGINE
     Indication: PRODUCT USED FOR UNKNOWN INDICATION
     Dosage: UNK, UNKNOWN
     Route: 065
     Dates: start: 2016

REACTIONS (12)
  - Craniocerebral injury [Not Recovered/Not Resolved]
  - Fall [Unknown]
  - Contusion [Recovering/Resolving]
  - Meniscus injury [Recovering/Resolving]
  - Rotator cuff syndrome [Recovering/Resolving]
  - Balance disorder [Not Recovered/Not Resolved]
  - Fall [Recovering/Resolving]
  - Anxiety [Not Recovered/Not Resolved]
  - Ligament sprain [Recovering/Resolving]
  - Memory impairment [Not Recovered/Not Resolved]
  - Depression [Not Recovered/Not Resolved]
  - Fall [Recovering/Resolving]

NARRATIVE: CASE EVENT DATE: 2017
